FAERS Safety Report 5142377-8 (Version None)
Quarter: 2006Q4

REPORT INFORMATION
  Report Type: 
  Country: None (occurrence: None)
  Receive Date: 20061102
  Receipt Date: 20061026
  Transmission Date: 20070319
  Serious: Yes (Hospitalization)
  Sender: FDA-Public Use
  Company Number: FR-GLAXOSMITHKLINE-B0444488A

PATIENT
  Age: 76 Year
  Sex: Female

DRUGS (11)
  1. DEROXAT [Suspect]
     Dosage: 30MG PER DAY
     Route: 048
  2. ACETAMINOPHEN W/ PROPOXYPHENE HCL [Suspect]
     Dosage: 2CAP THREE TIMES PER DAY
     Route: 048
     Dates: end: 20060207
  3. ELAVIL [Suspect]
     Dosage: 50MG PER DAY
     Route: 048
     Dates: end: 20060207
  4. NORDAZ [Suspect]
     Dosage: 7.5MG TWICE PER DAY
     Route: 048
     Dates: end: 20060207
  5. NOCTRAN [Suspect]
     Dosage: 10MG PER DAY
     Route: 048
     Dates: end: 20060207
  6. DOGMATIL [Suspect]
     Dosage: 50MG PER DAY
     Route: 048
     Dates: end: 20060207
  7. DICETEL [Concomitant]
     Dosage: 200MG PER DAY
     Dates: end: 20060207
  8. PARIET [Concomitant]
     Dosage: 20MG PER DAY
     Dates: end: 20060207
  9. ACTONEL [Concomitant]
     Dosage: 5MG PER DAY
     Dates: end: 20060207
  10. IDEOS [Concomitant]
     Dosage: 1UNIT PER DAY
     Dates: end: 20060207
  11. FORLAX [Concomitant]
     Dosage: 3UNIT PER DAY

REACTIONS (14)
  - CEREBRAL ATROPHY [None]
  - COGWHEEL RIGIDITY [None]
  - DEMENTIA ALZHEIMER'S TYPE [None]
  - DISORIENTATION [None]
  - DYSKINESIA [None]
  - EXTRAPYRAMIDAL DISORDER [None]
  - FALL [None]
  - HYPERREFLEXIA [None]
  - HYPERTONIA [None]
  - MAJOR DEPRESSION [None]
  - MUSCLE RIGIDITY [None]
  - ORTHOSTATIC HYPOTENSION [None]
  - SLEEP DISORDER [None]
  - TREMOR [None]
